FAERS Safety Report 25585505 (Version 1)
Quarter: 2025Q3

REPORT INFORMATION
  Report Type: Spontaneous
  Country: US (occurrence: None)
  Receive Date: 20250718
  Receipt Date: 20250718
  Transmission Date: 20251020
  Serious: No
  Sender: FDA-CTU
  Company Number: None

PATIENT
  Age: 9 Month
  Sex: Female

DRUGS (3)
  1. VIGABATRIN [Suspect]
     Active Substance: VIGABATRIN
     Indication: Epilepsy
  2. LEVETIRACETAM [Concomitant]
     Active Substance: LEVETIRACETAM
  3. CLONAZEPAM [Concomitant]
     Active Substance: CLONAZEPAM

REACTIONS (1)
  - Drug ineffective [None]

NARRATIVE: CASE EVENT DATE: 20250717
